FAERS Safety Report 7761205-5 (Version None)
Quarter: 2011Q3

REPORT INFORMATION
  Report Type: 
  Country: None (occurrence: None)
  Receive Date: 20110915
  Receipt Date: 20110902
  Transmission Date: 20111222
  Serious: Yes (Other)
  Sender: FDA-Public Use
  Company Number: 2011SP025948

PATIENT
  Age: 46 Year
  Sex: Male
  Weight: 79.6 kg

DRUGS (5)
  1. GRANISETRON [Concomitant]
  2. TEMOZOLOMIDE [Suspect]
     Indication: MALIGNANT OLIGODENDROGLIOMA
     Dosage: 160;430 MG
     Dates: end: 20110514
  3. TEMOZOLOMIDE [Suspect]
     Indication: MALIGNANT OLIGODENDROGLIOMA
     Dosage: 160;430 MG
     Dates: start: 20101223, end: 20110209
  4. LEVETIRACETAM [Concomitant]
  5. DEXAMETHASONE [Concomitant]

REACTIONS (4)
  - THROMBOCYTOPENIA [None]
  - LEUKOPENIA [None]
  - COLD AGGLUTININS [None]
  - HERPES SIMPLEX [None]
